FAERS Safety Report 10261385 (Version 1)
Quarter: 2014Q2

REPORT INFORMATION
  Report Type: Report from Study
  Country: CO (occurrence: CO)
  Receive Date: 20140626
  Receipt Date: 20140626
  Transmission Date: 20141212
  Serious: Yes (Death, Hospitalization, Other)
  Sender: FDA-Public Use
  Company Number: CO-JNJFOC-20140617649

PATIENT
  Age: 85 Year
  Sex: Male

DRUGS (2)
  1. XARELTO [Suspect]
     Indication: CEREBROVASCULAR ACCIDENT PROPHYLAXIS
     Route: 048
     Dates: start: 20130905
  2. XARELTO [Suspect]
     Indication: ATRIAL FIBRILLATION
     Route: 048
     Dates: start: 20130905

REACTIONS (4)
  - Intestinal ischaemia [Fatal]
  - Intestinal haemorrhage [Fatal]
  - Gastritis [Not Recovered/Not Resolved]
  - Vomiting [Not Recovered/Not Resolved]
